FAERS Safety Report 8854986 (Version 2)
Quarter: 2012Q4

REPORT INFORMATION
  Report Type: 
  Country: US (occurrence: US)
  Receive Date: 20121023
  Receipt Date: 20121109
  Transmission Date: 20130627
  Serious: No
  Sender: FDA-Public Use
  Company Number: US-TEVA-365279USA

PATIENT
  Age: 26 Year
  Sex: Female

DRUGS (2)
  1. NUVIGIL [Suspect]
  2. BIRTH CONTROL [Concomitant]

REACTIONS (3)
  - Rash [Recovered/Resolved]
  - Central nervous system stimulation [Recovered/Resolved]
  - Euphoric mood [Recovered/Resolved]
